FAERS Safety Report 5569668-0 (Version None)
Quarter: 2007Q4

REPORT INFORMATION
  Report Type: 
  Country: None (occurrence: None)
  Receive Date: 20071220
  Receipt Date: 20071214
  Transmission Date: 20080405
  Serious: Yes (Hospitalization)
  Sender: FDA-Public Use
  Company Number: B0499349A

PATIENT
  Age: 62 Year
  Sex: Female

DRUGS (2)
  1. FLUTIDE DISKUS [Suspect]
     Indication: ASTHMA
     Dosage: 100MG FOUR TIMES PER DAY
     Route: 055
     Dates: start: 19980101
  2. STMERIN D [Concomitant]
     Route: 055

REACTIONS (1)
  - ADRENAL INSUFFICIENCY [None]
